FAERS Safety Report 4444658-X (Version None)
Quarter: 2004Q3

REPORT INFORMATION
  Report Type: 
  Country: None (occurrence: None)
  Receive Date: 20040903
  Receipt Date: 20040825
  Transmission Date: 20050211
  Serious: Yes (Hospitalization)
  Sender: FDA-Public Use
  Company Number: 04-0059PO

PATIENT
  Age: 62 Year
  Sex: Male

DRUGS (3)
  1. PONSTAN (MEFENAMIC ACID) / PONSTEL NDA 15-034 [Suspect]
     Indication: SUICIDE ATTEMPT
     Dosage: 6 TABS, ONCE, PO
     Route: 048
  2. NORVASC [Suspect]
     Indication: SUICIDE ATTEMPT
     Dosage: 200 TABS, ONCE, PO
     Route: 048
  3. HYGROTON [Suspect]
     Dosage: 100 TABS, ONCE, PO
     Route: 048

REACTIONS (4)
  - CARDIOGENIC SHOCK [None]
  - HYPOTONIA [None]
  - MULTIPLE DRUG OVERDOSE INTENTIONAL [None]
  - SUICIDE ATTEMPT [None]
